FAERS Safety Report 9469230 (Version 1)
Quarter: 2013Q3

REPORT INFORMATION
  Report Type: Spontaneous
  Country: US (occurrence: US)
  Receive Date: 20130821
  Receipt Date: 20130821
  Transmission Date: 20140515
  Serious: No
  Sender: FDA-Public Use
  Company Number: US-NOVEN-13US007340

PATIENT
  Sex: Female

DRUGS (2)
  1. MINIVELLE [Suspect]
     Indication: VULVOVAGINAL DRYNESS
     Dosage: 0.075 MG, UNK
     Route: 062
     Dates: start: 201306, end: 201306
  2. MINIVELLE [Suspect]
     Dosage: 0.1 MG, UNK
     Route: 062
     Dates: start: 201306, end: 20130715

REACTIONS (6)
  - Back pain [Not Recovered/Not Resolved]
  - Breast tenderness [Not Recovered/Not Resolved]
  - Fluid retention [Not Recovered/Not Resolved]
  - Drug effect increased [Not Recovered/Not Resolved]
  - Off label use [Recovered/Resolved]
  - Drug prescribing error [Recovered/Resolved]
